FAERS Safety Report 14254728 (Version 1)
Quarter: 2017Q4

REPORT INFORMATION
  Report Type: Spontaneous
  Country: US (occurrence: US)
  Receive Date: 20171205
  Receipt Date: 20171205
  Transmission Date: 20180321
  Serious: Yes (Other)
  Sender: FDA-Public Use
  Company Number: None

PATIENT
  Age: 50 Year
  Sex: Female
  Weight: 78.6 kg

DRUGS (4)
  1. DEXAMETHASONE. [Concomitant]
     Active Substance: DEXAMETHASONE
  2. ALOXI [Concomitant]
     Active Substance: PALONOSETRON HYDROCHLORIDE
  3. EMEND [Suspect]
     Active Substance: APREPITANT
     Indication: CHEMOTHERAPY
     Dosage: ?          OTHER FREQUENCY:ONCE;?
     Route: 040
     Dates: start: 20171205, end: 20171205
  4. EMEND [Suspect]
     Active Substance: APREPITANT
     Indication: PREMEDICATION
     Dosage: ?          OTHER FREQUENCY:ONCE;?
     Route: 040
     Dates: start: 20171205, end: 20171205

REACTIONS (5)
  - Infusion related reaction [None]
  - Dyspnoea [None]
  - Feeling hot [None]
  - Flushing [None]
  - Therapy cessation [None]

NARRATIVE: CASE EVENT DATE: 20171205
